FAERS Safety Report 9477299 (Version 1)
Quarter: 2013Q3

REPORT INFORMATION
  Report Type: Spontaneous
  Country: IT (occurrence: IT)
  Receive Date: 20130826
  Receipt Date: 20130826
  Transmission Date: 20140515
  Serious: Yes (Hospitalization)
  Sender: FDA-Public Use
  Company Number: IT-ACTAVIS-2013-15359

PATIENT
  Age: 74 Year
  Sex: Male

DRUGS (3)
  1. IBUPROFEN (UNKNOWN) [Suspect]
     Indication: ARTHRALGIA
     Dosage: 1 DF DOSAGE FORM INTERVAL= 1 DAY(S)
     Route: 048
     Dates: start: 20130404, end: 20130406
  2. ASPIRIN (UNKNOWN) [Suspect]
     Indication: THROMBOSIS PROPHYLAXIS
     Dosage: 1 DF DOSAGE FORM INTERVAL= 1 DAY
     Route: 048
     Dates: start: 20130101, end: 20130406
  3. TAPAZOLE [Concomitant]
     Indication: PRODUCT USED FOR UNKNOWN INDICATION
     Route: 065

REACTIONS (1)
  - Rectal haemorrhage [Unknown]
